FAERS Safety Report 9384322 (Version 1)
Quarter: 2013Q3

REPORT INFORMATION
  Report Type: Report from Study
  Country: AR (occurrence: AR)
  Receive Date: 20130705
  Receipt Date: 20130705
  Transmission Date: 20140515
  Serious: Yes (Death)
  Sender: FDA-Public Use
  Company Number: PHHY2013AR070082

PATIENT
  Sex: Female

DRUGS (2)
  1. DIOVAN [Suspect]
     Indication: BLOOD PRESSURE ABNORMAL
     Dosage: 80 MG, DAILY
     Route: 048
  2. COLMIBE [Concomitant]
     Dosage: UNK UKN, UNK

REACTIONS (2)
  - Cardio-respiratory arrest [Fatal]
  - Agitation [Fatal]
